FAERS Safety Report 9455814 (Version 1)
Quarter: 2013Q3

REPORT INFORMATION
  Report Type: Spontaneous
  Country: DE (occurrence: ES)
  Receive Date: 20130813
  Receipt Date: 20130813
  Transmission Date: 20140515
  Serious: Yes (Hospitalization, Other)
  Sender: FDA-Public Use
  Company Number: ES-FRI-1000022683

PATIENT
  Age: 73 Year
  Sex: Female
  Weight: 105 kg

DRUGS (12)
  1. ROFLUMILAST [Suspect]
     Indication: CHRONIC OBSTRUCTIVE PULMONARY DISEASE
     Dosage: 500 MCG
     Route: 048
     Dates: start: 20110409, end: 20110626
  2. TORASEMIDE [Concomitant]
  3. DIOSMIN WITH HESPERIDIN [Concomitant]
  4. OMEPRAZOLE [Concomitant]
  5. ROSUVASTATIN [Concomitant]
  6. NIFEDIPINE [Concomitant]
  7. PARACETAMOL W/ TRAMADOL [Concomitant]
  8. INDACATEROL [Concomitant]
  9. CICLESONIDE [Concomitant]
  10. METFORMIN [Concomitant]
  11. ACENOCOUMAROL [Concomitant]
  12. DIGOXIN [Concomitant]

REACTIONS (13)
  - Alkalosis hypokalaemic [Recovered/Resolved]
  - Vomiting [Recovered/Resolved]
  - Dehydration [Recovered/Resolved]
  - Cardioactive drug level increased [Recovered/Resolved]
  - Biliary colic [Recovered/Resolved]
  - Hypotension [Recovered/Resolved]
  - Blood potassium decreased [Recovered/Resolved]
  - Nausea [Recovered/Resolved]
  - Decreased appetite [Recovered/Resolved]
  - Diarrhoea [Recovered/Resolved]
  - Weight decreased [Recovered/Resolved]
  - Abdominal pain upper [Recovered/Resolved]
  - Gastroenteritis [Recovered/Resolved]
